FAERS Safety Report 12930578 (Version 1)
Quarter: 2016Q4

REPORT INFORMATION
  Report Type: Report from Study
  Country: US (occurrence: US)
  Receive Date: 20161110
  Receipt Date: 20161110
  Transmission Date: 20170207
  Serious: Yes (Hospitalization)
  Sender: FDA-Public Use
  Company Number: US-KADMON PHARMACEUTICALS, LLC-KAD201611-004009

PATIENT
  Age: 39 Year
  Sex: Female

DRUGS (11)
  1. LEVOTHYROXINE. [Concomitant]
     Active Substance: LEVOTHYROXINE
  2. LISINOPRIL. [Concomitant]
     Active Substance: LISINOPRIL
  3. ONDANSETRON [Concomitant]
     Active Substance: ONDANSETRON
  4. RIBAVIRIN 200 MG TABLETS [Suspect]
     Active Substance: RIBAVIRIN
     Indication: HEPATITIS C
     Route: 048
     Dates: start: 201609
  5. ATORVASTATIN [Concomitant]
     Active Substance: ATORVASTATIN
  6. RANITIDINE. [Concomitant]
     Active Substance: RANITIDINE
  7. SYMBICORT [Concomitant]
     Active Substance: BUDESONIDE\FORMOTEROL FUMARATE DIHYDRATE
  8. VIEKIRA PAK [Suspect]
     Active Substance: DASABUVIR\OMBITASVIR\PARITAPREVIR\RITONAVIR
     Indication: HEPATITIS C
     Dosage: TABLET
     Route: 048
     Dates: start: 201609
  9. FENTANYL. [Concomitant]
     Active Substance: FENTANYL
  10. OXYCODONE [Concomitant]
     Active Substance: OXYCODONE
  11. VENTOLIN [Concomitant]
     Active Substance: ALBUTEROL SULFATE

REACTIONS (2)
  - Malaise [Not Recovered/Not Resolved]
  - Weight increased [Unknown]

NARRATIVE: CASE EVENT DATE: 20161021
